FAERS Safety Report 14175192 (Version 2)
Quarter: 2017Q4

REPORT INFORMATION
  Report Type: Spontaneous
  Country: US (occurrence: US)
  Receive Date: 20171109
  Receipt Date: 20171222
  Transmission Date: 20180321
  Serious: Yes (Other)
  Sender: FDA-Public Use
  Company Number: US-009507513-1710USA016189

PATIENT
  Age: 53 Year
  Sex: Male
  Weight: 65.77 kg

DRUGS (3)
  1. CARDIZEM [Concomitant]
     Active Substance: DILTIAZEM HYDROCHLORIDE
     Indication: CARDIAC DISORDER
     Dosage: UNKNOWN
     Route: 048
  2. BETAMETHASONE. [Suspect]
     Active Substance: BETAMETHASONE
     Indication: POST PROCEDURAL SWELLING
     Dosage: ONE TABLET, BY MOUTH
     Route: 048
     Dates: start: 19900705, end: 19900705
  3. PERSANTIN [Concomitant]
     Active Substance: DIPYRIDAMOLE
     Indication: CARDIAC DISORDER
     Dosage: 75 MG, ONCE A DAY, BY MOUTH
     Route: 048

REACTIONS (9)
  - Miliaria [Not Recovered/Not Resolved]
  - Sinusitis [Unknown]
  - Musculoskeletal discomfort [Not Recovered/Not Resolved]
  - Scoliosis [Not Recovered/Not Resolved]
  - Rash pruritic [Not Recovered/Not Resolved]
  - Rash erythematous [Not Recovered/Not Resolved]
  - Nerve compression [Not Recovered/Not Resolved]
  - Drug hypersensitivity [Unknown]
  - Bursitis [Unknown]

NARRATIVE: CASE EVENT DATE: 19900705
